FAERS Safety Report 17412575 (Version 1)
Quarter: 2020Q1

REPORT INFORMATION
  Report Type: Spontaneous
  Country: JP (occurrence: JP)
  Receive Date: 20200213
  Receipt Date: 20200213
  Transmission Date: 20200409
  Serious: Yes (Other)
  Sender: FDA-Public Use
  Company Number: JP-GLAXOSMITHKLINE-JP2020023011

PATIENT
  Age: 55 Year
  Sex: Female

DRUGS (2)
  1. HALCION [Concomitant]
     Active Substance: TRIAZOLAM
     Dosage: UNK
  2. RELVAR ELLIPTA [Suspect]
     Active Substance: FLUTICASONE FUROATE\VILANTEROL TRIFENATATE
     Dosage: 200 ?G
     Route: 055

REACTIONS (6)
  - Oropharyngeal pain [Unknown]
  - Persecutory delusion [Unknown]
  - Hallucination, auditory [Unknown]
  - Photopsia [Unknown]
  - Chest discomfort [Unknown]
  - Product complaint [Unknown]
